FAERS Safety Report 9195320 (Version 1)
Quarter: 2013Q1

REPORT INFORMATION
  Report Type: Spontaneous
  Country: US (occurrence: US)
  Receive Date: 20130328
  Receipt Date: 20130328
  Transmission Date: 20140127
  Serious: No
  Sender: FDA-Public Use
  Company Number: US-ALLERGAN-1204641US

PATIENT
  Sex: Female

DRUGS (3)
  1. COMBIGAN[R] [Suspect]
     Indication: GLAUCOMA
     Dosage: 2 GTT, UNK
     Route: 047
  2. LUMIGAN [Suspect]
     Indication: GLAUCOMA
     Dosage: 2 GTT, UNK
     Route: 047
  3. ALAVEN [Concomitant]
     Indication: EYE PRURITUS
     Dosage: AS NEEDED

REACTIONS (7)
  - Diarrhoea [Not Recovered/Not Resolved]
  - Dry skin [Recovering/Resolving]
  - Dry skin [Recovered/Resolved]
  - Lacrimation increased [Not Recovered/Not Resolved]
  - Foreign body sensation in eyes [Not Recovered/Not Resolved]
  - Dry eye [Not Recovered/Not Resolved]
  - Eye irritation [Not Recovered/Not Resolved]
